FAERS Safety Report 8477805-3 (Version None)
Quarter: 2012Q2

REPORT INFORMATION
  Report Type: 
  Country: None (occurrence: None)
  Receive Date: 20120629
  Receipt Date: 20120620
  Transmission Date: 20120825
  Serious: Yes (Hospitalization)
  Sender: FDA-Public Use
  Company Number: US-BAYER-2011-091620

PATIENT
  Age: 33 Year
  Sex: Female
  Weight: 77.098 kg

DRUGS (4)
  1. PAXIL [Concomitant]
     Indication: ANXIETY
     Dosage: 20 MG, UNK
     Dates: start: 20000101, end: 20030101
  2. BENADRYL [Concomitant]
  3. YASMIN [Suspect]
     Dosage: UNK
     Dates: start: 20010807, end: 20010820
  4. SOLU-MEDROL [Concomitant]

REACTIONS (6)
  - INJURY [None]
  - PSYCHOLOGICAL TRAUMA [None]
  - PULMONARY EMBOLISM [None]
  - PAIN [None]
  - EMOTIONAL DISTRESS [None]
  - ANXIETY [None]
